FAERS Safety Report 16211309 (Version 1)
Quarter: 2019Q2

REPORT INFORMATION
  Report Type: Spontaneous
  Country: CA (occurrence: CA)
  Receive Date: 20190418
  Receipt Date: 20190418
  Transmission Date: 20190711
  Serious: Yes (Congenital Anomaly, Other)
  Sender: FDA-Public Use
  Company Number: CA-AUROBINDO-AUR-APL-2019-020184

PATIENT

DRUGS (3)
  1. PAROXETINE TABLET [Suspect]
     Active Substance: PAROXETINE
     Indication: PRODUCT USED FOR UNKNOWN INDICATION
     Dosage: 20 MILLIGRAM, ONCE A DAY
     Route: 064
  2. PAROXETINE TABLET [Suspect]
     Active Substance: PAROXETINE
     Dosage: 20 MILLIGRAM
     Route: 064
  3. PAROXETINE TABLET [Suspect]
     Active Substance: PAROXETINE
     Dosage: 30 MILLIGRAM, ONCE A DAY
     Route: 064

REACTIONS (5)
  - Gastroschisis [Unknown]
  - Foetal exposure during pregnancy [Unknown]
  - Small intestinal obstruction [Unknown]
  - Single functional kidney [Unknown]
  - Foetal growth restriction [Unknown]
